FAERS Safety Report 9726456 (Version 2)
Quarter: 2014Q2

REPORT INFORMATION
  Report Type: Report from Study
  Country: US (occurrence: US)
  Receive Date: 20131203
  Receipt Date: 20140505
  Transmission Date: 20141212
  Serious: Yes (Other)
  Sender: FDA-Public Use
  Company Number: US-ABBVIE-13P-163-1174212-00

PATIENT
  Age: 89 Year
  Sex: Female
  Weight: 75.36 kg

DRUGS (5)
  1. HUMIRA [Suspect]
     Indication: RHEUMATOID ARTHRITIS
     Dates: end: 2013
  2. HUMIRA [Suspect]
     Indication: PSORIASIS
     Dates: start: 201311
  3. CIPRO [Suspect]
     Indication: LOWER RESPIRATORY TRACT INFECTION
     Dates: start: 20131116, end: 20131125
  4. THYROXINE [Concomitant]
     Indication: HYPOTHYROIDISM
  5. NUTRIENTS [Concomitant]
     Indication: SUPPLEMENTATION THERAPY

REACTIONS (26)
  - Glaucoma [Not Recovered/Not Resolved]
  - Retinal disorder [Not Recovered/Not Resolved]
  - Pancreatic cyst [Not Recovered/Not Resolved]
  - Brain neoplasm [Not Recovered/Not Resolved]
  - Lower respiratory tract infection [Recovered/Resolved]
  - Influenza [Recovered/Resolved]
  - Cough [Recovered/Resolved]
  - Respiratory tract congestion [Recovered/Resolved]
  - Lower respiratory tract infection [Not Recovered/Not Resolved]
  - Influenza [Not Recovered/Not Resolved]
  - Cough [Not Recovered/Not Resolved]
  - Respiratory tract congestion [Not Recovered/Not Resolved]
  - Inflammation [Not Recovered/Not Resolved]
  - Inner ear inflammation [Not Recovered/Not Resolved]
  - Gastritis [Not Recovered/Not Resolved]
  - Diarrhoea [Not Recovered/Not Resolved]
  - Arthritis [Not Recovered/Not Resolved]
  - Hypertension [Not Recovered/Not Resolved]
  - Fluid retention [Not Recovered/Not Resolved]
  - Psoriasis [Unknown]
  - Orthostatic hypotension [Unknown]
  - Visual acuity reduced [Unknown]
  - Headache [Unknown]
  - Pain [Unknown]
  - Musculoskeletal stiffness [Unknown]
  - Fatigue [Unknown]
